FAERS Safety Report 18259247 (Version 1)
Quarter: 2020Q3

REPORT INFORMATION
  Report Type: Spontaneous
  Country: DK (occurrence: DK)
  Receive Date: 20200911
  Receipt Date: 20200911
  Transmission Date: 20201103
  Serious: Yes (Congenital Anomaly)
  Sender: FDA-Public Use
  Company Number: DK-NOVOPROD-750494

PATIENT
  Age: 39 Year
  Sex: Female
  Weight: 74 kg

DRUGS (3)
  1. TEVA LAMOTRIGINE [Concomitant]
     Active Substance: LAMOTRIGINE
     Indication: MOOD SWINGS
     Dosage: 200 MG, QD
     Route: 048
     Dates: start: 20160822
  2. OZEMPIC [Suspect]
     Active Substance: SEMAGLUTIDE
     Indication: OVERWEIGHT
     Dosage: 1 MG, QW
     Route: 058
     Dates: start: 20190601, end: 20200809
  3. HEXAL [HEXACHLOROPHENE] [Concomitant]
     Indication: BIPOLAR DISORDER
     Dosage: 30 MG, QD
     Route: 048
     Dates: start: 20180501

REACTIONS (3)
  - Maternal exposure during pregnancy [Recovered/Resolved]
  - Abortion missed [Recovering/Resolving]
  - Off label use [Unknown]

NARRATIVE: CASE EVENT DATE: 20190601
